FAERS Safety Report 4872638-9 (Version None)
Quarter: 2006Q1

REPORT INFORMATION
  Report Type: 
  Country: None (occurrence: None)
  Receive Date: 20060105
  Receipt Date: 20020207
  Transmission Date: 20060701
  Serious: Yes (Hospitalization)
  Sender: FDA-Public Use
  Company Number: NZ-ABBOTT-02P-118-0187814-00

PATIENT
  Sex: Male

DRUGS (8)
  1. FENOFIBRATE [Suspect]
     Indication: DYSLIPIDAEMIA
     Route: 048
     Dates: start: 19990602
  2. GLIPIZIDE [Concomitant]
     Indication: DRUG USE FOR UNKNOWN INDICATION
     Dates: start: 19890101, end: 20010501
  3. ASPIRIN [Concomitant]
     Indication: DRUG USE FOR UNKNOWN INDICATION
     Dates: start: 19880101
  4. ATENOLOL [Concomitant]
     Indication: DRUG USE FOR UNKNOWN INDICATION
     Dates: start: 19880101
  5. METFORMIN [Concomitant]
     Indication: DRUG USE FOR UNKNOWN INDICATION
     Dates: start: 20001001, end: 20010201
  6. PANTOPRAZOLE SODIUM [Concomitant]
     Indication: DRUG USE FOR UNKNOWN INDICATION
     Dates: start: 20001101
  7. CILAZAPRIL [Concomitant]
     Indication: DRUG USE FOR UNKNOWN INDICATION
     Dates: start: 20000101
  8. ACARBOSE [Concomitant]
     Indication: DRUG USE FOR UNKNOWN INDICATION
     Dates: start: 20001201, end: 20010501

REACTIONS (2)
  - DIPLOPIA [None]
  - VISUAL DISTURBANCE [None]
